FAERS Safety Report 4620318-7 (Version None)
Quarter: 2005Q1

REPORT INFORMATION
  Report Type: 
  Country: None (occurrence: None)
  Receive Date: 20050324
  Receipt Date: 20050309
  Transmission Date: 20050727
  Serious: Yes (Hospitalization, Other)
  Sender: FDA-Public Use
  Company Number: JP_050306090

PATIENT
  Age: 53 Year
  Sex: Female
  Weight: 47 kg

DRUGS (2)
  1. GEMZAR [Suspect]
     Indication: BRONCHIOLOALVEOLAR CARCINOMA
     Dates: start: 20010301
  2. CISPLATIN [Concomitant]

REACTIONS (3)
  - DEHYDRATION [None]
  - PRODUCTIVE COUGH [None]
  - URINE OUTPUT DECREASED [None]
